FAERS Safety Report 18802675 (Version 1)
Quarter: 2021Q1

REPORT INFORMATION
  Report Type: Spontaneous
  Country: US (occurrence: US)
  Receive Date: 20210129
  Receipt Date: 20210129
  Transmission Date: 20210419
  Serious: No
  Sender: FDA-Public Use
  Company Number: US-DRREDDYS-USA/USA/21/0131175

PATIENT
  Age: 70 Year
  Sex: Female
  Weight: 41.85 kg

DRUGS (2)
  1. TRAZODONE [Concomitant]
     Active Substance: TRAZODONE HYDROCHLORIDE
     Indication: ANXIETY
  2. ESZOPICLONE. [Suspect]
     Active Substance: ESZOPICLONE
     Indication: INSOMNIA
     Dosage: 1 TABLET AT NIGHT RIGHT BEFORE BEDTIME
     Route: 048
     Dates: start: 202101

REACTIONS (2)
  - Drug ineffective [Unknown]
  - Product quality issue [Unknown]
